FAERS Safety Report 10200775 (Version 2)
Quarter: 2014Q2

REPORT INFORMATION
  Report Type: Spontaneous
  Country: IT (occurrence: IT)
  Receive Date: 20140528
  Receipt Date: 20140613
  Transmission Date: 20141212
  Serious: Yes (Hospitalization)
  Sender: FDA-Public Use
  Company Number: IT-009507513-1405ITA012504

PATIENT
  Age: 39 Year
  Sex: Female

DRUGS (2)
  1. NOXAFIL [Suspect]
     Indication: ANTIFUNGAL PROPHYLAXIS
     Dosage: 10 ML, TOTAL DAILY
     Route: 042
     Dates: start: 20140423, end: 20140423
  2. CORTICOSTEROIDS (UNSPECIFIED) [Concomitant]
     Dosage: DAILY DOSE UNKNOWN

REACTIONS (2)
  - Chills [Recovered/Resolved]
  - Back pain [Recovered/Resolved]
